FAERS Safety Report 9668287 (Version 1)
Quarter: 2013Q4

REPORT INFORMATION
  Report Type: Spontaneous
  Country: GB (occurrence: GB)
  Receive Date: 20131104
  Receipt Date: 20131104
  Transmission Date: 20140711
  Serious: Yes (Hospitalization)
  Sender: FDA-Public Use
  Company Number: PHHY2013GB121494

PATIENT
  Age: 77 Year
  Sex: 0

DRUGS (11)
  1. AMOXICILLIN [Suspect]
     Dosage: 500 MG, TID
     Route: 048
     Dates: start: 20100329, end: 20100405
  2. CO-AMOXICLAV [Suspect]
     Indication: PNEUMONIA ASPIRATION
     Dosage: 1.2G STAT
     Route: 042
     Dates: start: 20110413, end: 20110413
  3. PIPERACILLIN AND TAZOBACTAM [Suspect]
     Indication: RESPIRATORY FAILURE
     Dosage: 4.5 G, TID
     Route: 041
     Dates: start: 20110414, end: 20110422
  4. PIPERACILLIN AND TAZOBACTAM [Suspect]
     Indication: PSEUDOMONAS INFECTION
     Dosage: 4.5 G, TID
     Route: 041
     Dates: start: 20110429, end: 20110509
  5. MEROPENEM [Suspect]
     Indication: LOWER RESPIRATORY TRACT INFECTION
     Dosage: 2 G, TID
     Route: 041
     Dates: end: 20110429
  6. CIPROFLOXACIN [Suspect]
     Indication: PSEUDOMONAS INFECTION
     Dosage: 500 MG, BID
     Route: 048
     Dates: end: 20110430
  7. CLARITHROMYCIN [Suspect]
     Indication: PNEUMONIA ASPIRATION
     Dosage: 500 MG (ONE DOSE THEN CHANGED TO TAZOCIN)
     Route: 042
     Dates: start: 20110414, end: 20110414
  8. CLARITHROMYCIN [Suspect]
     Indication: LOWER RESPIRATORY TRACT INFECTION
     Dosage: 500 MG, BID
     Dates: start: 20110422, end: 20110428
  9. LEVOFLOXACIN [Suspect]
     Dosage: 500 MG (ONE DOSE THEN CHANGED TO TAZOCIN)
     Route: 042
     Dates: start: 20110414, end: 20110414
  10. TEICOPLANIN [Suspect]
     Indication: STAPHYLOCOCCAL INFECTION
     Dosage: 1.2 G, UNK
  11. TAZOCIN [Suspect]
     Indication: PNEUMONIA ASPIRATION

REACTIONS (9)
  - Clostridium difficile infection [Recovered/Resolved]
  - Pyrexia [Unknown]
  - C-reactive protein increased [Unknown]
  - White blood cell count increased [Unknown]
  - Diarrhoea [Unknown]
  - Abnormal faeces [Unknown]
  - Faeces discoloured [Unknown]
  - Lung consolidation [Unknown]
  - Pseudomonas infection [Unknown]
